FAERS Safety Report 9733448 (Version 1)
Quarter: 2013Q4

REPORT INFORMATION
  Report Type: Spontaneous
  Country: US (occurrence: US)
  Receive Date: 20131205
  Receipt Date: 20131205
  Transmission Date: 20140711
  Serious: Yes (Other)
  Sender: FDA-Public Use
  Company Number: US-BAYER-2013-147802

PATIENT
  Sex: Female
  Weight: 73 kg

DRUGS (9)
  1. BETASERON [Suspect]
     Indication: MULTIPLE SCLEROSIS
     Dosage: 0.25 MG, QOD
     Route: 058
  2. BACLOFEN [Concomitant]
  3. TOPROL XL [Concomitant]
  4. ASPIRIN [Concomitant]
  5. CALCIUM [Concomitant]
  6. LIPITOR [Concomitant]
  7. CYMBALTA [Concomitant]
  8. LISINOPRIL [Concomitant]
  9. FOSAMAX [Concomitant]

REACTIONS (1)
  - Multiple sclerosis relapse [Unknown]
